FAERS Safety Report 13086422 (Version 2)
Quarter: 2017Q1

REPORT INFORMATION
  Report Type: Report from Study
  Country: US (occurrence: US)
  Receive Date: 20170104
  Receipt Date: 20170127
  Transmission Date: 20170428
  Serious: Yes (Death, Hospitalization)
  Sender: FDA-Public Use
  Company Number: US-ACTELION-A-NJ2016-141544

PATIENT
  Age: 75 Year
  Sex: Female

DRUGS (2)
  1. TYVASO [Concomitant]
     Active Substance: TREPROSTINIL
  2. TRACLEER [Suspect]
     Active Substance: BOSENTAN
     Indication: PULMONARY HYPERTENSION
     Dosage: 125 MG, BID
     Route: 048

REACTIONS (8)
  - Oedema [Fatal]
  - Peripheral swelling [Fatal]
  - Fluid retention [Fatal]
  - Abdominal distension [Fatal]
  - Interstitial lung disease [Fatal]
  - Pulmonary hypertension [Fatal]
  - Atrial fibrillation [Fatal]
  - Scleroderma [Fatal]

NARRATIVE: CASE EVENT DATE: 20161227
